FAERS Safety Report 8667484 (Version 5)
Quarter: 2012Q4

REPORT INFORMATION
  Report Type: 
  Country: US (occurrence: US)
  Receive Date: 20120717
  Receipt Date: 20121004
  Transmission Date: 20130627
  Serious: Yes (Other)
  Sender: FDA-Public Use
  Company Number: US-009507513-2012SP030051

PATIENT
  Age: 58 None
  Sex: Male

DRUGS (2)
  1. PEG-INTRON [Suspect]
     Indication: HEPATITIS C
     Dosage: UNK
     Dates: start: 20120323, end: 20120907
  2. REBETOL [Suspect]
     Indication: HEPATITIS C
     Dosage: 3 DF, tid
     Dates: start: 20120323, end: 20120907

REACTIONS (35)
  - Thyroid function test abnormal [Unknown]
  - Anger [Unknown]
  - Verbal abuse [Unknown]
  - Antibiotic therapy [Unknown]
  - Lethargy [Unknown]
  - Obsessive-compulsive disorder [Unknown]
  - Lung disorder [Unknown]
  - Increased upper airway secretion [Unknown]
  - Thirst [Unknown]
  - Injection site haemorrhage [Unknown]
  - Injection site erythema [Unknown]
  - Injection site ulcer [Unknown]
  - Dermatitis contact [Unknown]
  - Memory impairment [Unknown]
  - Muscle spasms [Unknown]
  - Agitation [Unknown]
  - Injection site rash [Unknown]
  - Injection site pruritus [Unknown]
  - Irritability [Unknown]
  - Rash [Unknown]
  - Rash erythematous [Not Recovered/Not Resolved]
  - Pruritus [Unknown]
  - Dyspnoea [Unknown]
  - Haemoglobin decreased [Unknown]
  - Influenza like illness [Unknown]
  - Headache [Unknown]
  - Anxiety [Unknown]
  - Asthenia [Unknown]
  - Sinusitis [Unknown]
  - Anxiety [Unknown]
  - Dyspnoea [Unknown]
  - Cough [Unknown]
  - Fatigue [Unknown]
  - Drug dose omission [Unknown]
  - Inappropriate schedule of drug administration [Unknown]
